FAERS Safety Report 24643982 (Version 2)
Quarter: 2024Q4

REPORT INFORMATION
  Report Type: Spontaneous
  Country: CH (occurrence: CH)
  Receive Date: 20241120
  Receipt Date: 20241203
  Transmission Date: 20250115
  Serious: Yes (Death, Life-Threatening, Hospitalization, Other)
  Sender: MERCK
  Company Number: CH-009507513-2411CHE006516

PATIENT
  Sex: Male
  Weight: 71 kg

DRUGS (10)
  1. KEYTRUDA [Suspect]
     Active Substance: PEMBROLIZUMAB
     Indication: Squamous cell carcinoma of head and neck
     Dosage: 200 MILLIGRAM, Q3W
     Dates: start: 20220525, end: 20220726
  2. KEYTRUDA [Suspect]
     Active Substance: PEMBROLIZUMAB
     Indication: Oesophageal carcinoma
  3. FLUOROURACIL [Suspect]
     Active Substance: FLUOROURACIL
     Indication: Squamous cell carcinoma of head and neck
     Dosage: UNK
     Dates: start: 20220525
  4. FLUOROURACIL [Suspect]
     Active Substance: FLUOROURACIL
     Indication: Oesophageal carcinoma
  5. CARBOPLATIN [Suspect]
     Active Substance: CARBOPLATIN
     Indication: Squamous cell carcinoma of head and neck
     Dosage: AREA UNDER THE CURVE (AUC) 2; Q3W
     Route: 042
     Dates: start: 20220525, end: 20220614
  6. CARBOPLATIN [Suspect]
     Active Substance: CARBOPLATIN
     Indication: Oesophageal carcinoma
     Dosage: UNK
     Dates: end: 20221005
  7. PACLITAXEL [Suspect]
     Active Substance: PACLITAXEL
     Indication: Squamous cell carcinoma of head and neck
     Dosage: 80 MG/SQ. METER; WEEKLY FOR 2 WEEKS OUT OF 3
     Dates: end: 20220612
  8. PACLITAXEL [Suspect]
     Active Substance: PACLITAXEL
     Indication: Oesophageal carcinoma
     Dosage: 80 MG/SQ. METER; WEEKLY FOR 2 WEEKS OUT OF 3
     Route: 042
     Dates: start: 20220525, end: 20220616
  9. PACLITAXEL [Suspect]
     Active Substance: PACLITAXEL
     Dosage: UNK, QW
     Route: 042
     Dates: start: 20220829, end: 20221005
  10. RITUXIMAB [Suspect]
     Active Substance: RITUXIMAB
     Dosage: UNK
     Dates: start: 20220829, end: 20221005

REACTIONS (6)
  - Pneumonia pseudomonal [Fatal]
  - Systemic candida [Fatal]
  - Pancytopenia [Fatal]
  - Neutropenia [Unknown]
  - Surgery [Unknown]
  - Off label use [Unknown]

NARRATIVE: CASE EVENT DATE: 20220927
